FAERS Safety Report 16568480 (Version 1)
Quarter: 2019Q3

REPORT INFORMATION
  Report Type: Spontaneous
  Country: PL (occurrence: PL)
  Receive Date: 20190712
  Receipt Date: 20190712
  Transmission Date: 20191004
  Serious: Yes (Other)
  Sender: FDA-Public Use
  Company Number: PHHY2019PL156171

PATIENT
  Age: 40 Year
  Sex: Male
  Weight: 74 kg

DRUGS (1)
  1. BROMOCRIPTINE [Suspect]
     Active Substance: BROMOCRIPTINE
     Indication: BLOOD PROLACTIN INCREASED
     Dosage: 2.5 MG, UNK
     Route: 048

REACTIONS (7)
  - Dry throat [Recovered/Resolved]
  - Tinnitus [Recovered/Resolved]
  - Malaise [Recovered/Resolved]
  - Syncope [Recovered/Resolved]
  - Nausea [Recovered/Resolved]
  - Blood pressure decreased [Recovered/Resolved]
  - Fatigue [Recovered/Resolved]

NARRATIVE: CASE EVENT DATE: 20160209
